FAERS Safety Report 6150990-4 (Version None)
Quarter: 2009Q2

REPORT INFORMATION
  Report Type: 
  Country: None (occurrence: None)
  Receive Date: 20090410
  Receipt Date: 20090120
  Transmission Date: 20091009
  Serious: No
  Sender: FDA-Public Use
  Company Number: A0764174A

PATIENT
  Age: 68 Year
  Sex: Female

DRUGS (3)
  1. TYKERB [Suspect]
     Indication: BREAST CANCER
     Dosage: 5TAB PER DAY
     Route: 048
     Dates: start: 20090116
  2. MULTIPLE MEDICATIONS [Concomitant]
  3. SYNTHROID [Concomitant]

REACTIONS (1)
  - DIARRHOEA [None]
